FAERS Safety Report 9463821 (Version 1)
Quarter: 2013Q3

REPORT INFORMATION
  Report Type: Spontaneous
  Country: US (occurrence: US)
  Receive Date: 20130819
  Receipt Date: 20130819
  Transmission Date: 20140515
  Serious: Yes (Death)
  Sender: FDA-Public Use
  Company Number: US-JNJFOC-20130805537

PATIENT
  Sex: Female
  Weight: 49.9 kg

DRUGS (1)
  1. SANDOZ FENTANYL TRANSDERMAL SYSTEM [Suspect]
     Indication: PAIN
     Dosage: NDC 000781 7241 55
     Route: 062
     Dates: start: 20070919, end: 2007

REACTIONS (2)
  - Cardiac failure [Fatal]
  - Respiratory failure [Fatal]
